FAERS Safety Report 9961946 (Version 2)
Quarter: 2014Q3

REPORT INFORMATION
  Report Type: Spontaneous
  Country: IT (occurrence: IT)
  Receive Date: 20140305
  Receipt Date: 20140710
  Transmission Date: 20150326
  Serious: Yes (Hospitalization)
  Sender: FDA-Public Use
  Company Number: IT-SA-2014SA022846

PATIENT
  Age: 78 Year
  Sex: Female
  Weight: 70 kg

DRUGS (3)
  1. LASIX [Suspect]
     Active Substance: FUROSEMIDE
     Indication: HYPERTENSION
     Route: 048
     Dates: start: 20090101, end: 20131216
  2. KEPPRA [Concomitant]
     Active Substance: LEVETIRACETAM
     Indication: EPILEPSY
     Route: 048
  3. KCL-RETARD [Concomitant]
     Active Substance: POTASSIUM CHLORIDE
     Route: 048

REACTIONS (6)
  - Urinary incontinence [Recovering/Resolving]
  - Loss of consciousness [Recovering/Resolving]
  - Tremor [Recovering/Resolving]
  - Faecal incontinence [Recovering/Resolving]
  - Hypokalaemia [Recovering/Resolving]
  - Vomiting [Recovering/Resolving]

NARRATIVE: CASE EVENT DATE: 20131216
